FAERS Safety Report 10579385 (Version 1)
Quarter: 2014Q4

REPORT INFORMATION
  Report Type: Spontaneous
  Country: IT (occurrence: IT)
  Receive Date: 20141112
  Receipt Date: 20141112
  Transmission Date: 20150529
  Serious: Yes (Hospitalization)
  Sender: FDA-Public Use
  Company Number: IT-BRISTOL-MYERS SQUIBB COMPANY-21576608

PATIENT
  Age: 87 Year
  Sex: Female

DRUGS (5)
  1. ALLOPURINOL. [Concomitant]
     Active Substance: ALLOPURINOL
  2. COUMADIN [Suspect]
     Active Substance: WARFARIN SODIUM
     Indication: ATRIAL FIBRILLATION
     Dosage: 1DF- 1UNIT
     Route: 048
     Dates: start: 20140101, end: 20140928
  3. INSULIN [Concomitant]
     Active Substance: INSULIN NOS
  4. BISOPROLOL HEMIFUMARATE [Concomitant]
     Active Substance: BISOPROLOL FUMARATE
  5. EFFERALGAN [Concomitant]
     Active Substance: ACETAMINOPHEN

REACTIONS (5)
  - Dyspnoea [Unknown]
  - Melaena [Unknown]
  - Overdose [Unknown]
  - Cardiac failure [Unknown]
  - Anaemia [Unknown]

NARRATIVE: CASE EVENT DATE: 20140928
